FAERS Safety Report 19677490 (Version 4)
Quarter: 2021Q3

REPORT INFORMATION
  Report Type: Report from Study
  Country: CN (occurrence: CN)
  Receive Date: 20210810
  Receipt Date: 20210916
  Transmission Date: 20211014
  Serious: Yes (Death, Life-Threatening, Hospitalization)
  Sender: FDA-Public Use
  Company Number: CN-ROCHE-2848877

PATIENT
  Age: 67 Year
  Sex: Female
  Weight: 48 kg

DRUGS (40)
  1. CISPLATIN. [Suspect]
     Active Substance: CISPLATIN
     Indication: OESOPHAGEAL SQUAMOUS CELL CARCINOMA METASTATIC
     Dosage: ON 31/MAY/2021 SHE RECEIVED THE MOST RECENT DOSE OF CISPLATIN
     Route: 042
  2. PACLITAXEL. [Suspect]
     Active Substance: PACLITAXEL
     Indication: OESOPHAGEAL SQUAMOUS CELL CARCINOMA METASTATIC
     Dosage: ON 31/MAY/2021 SHE RECEIVED THE MOST RECENT DOSE OF BLINDED PACLITAXEL,
     Route: 042
  3. SAMMY [Concomitant]
     Indication: POLYURIA
     Dates: start: 20210531, end: 20210531
  4. DEXAMETHASONE SODIUM PHOSPHATE. [Concomitant]
     Active Substance: DEXAMETHASONE SODIUM PHOSPHATE
     Route: 042
     Dates: start: 20210531, end: 20210531
  5. POTASSIUM CHLORIDE. [Concomitant]
     Active Substance: POTASSIUM CHLORIDE
     Indication: HYPOKALAEMIA
     Dates: start: 20210615, end: 20210623
  6. FUROSEMIDE. [Concomitant]
     Active Substance: FUROSEMIDE
     Dates: start: 20210630, end: 20210710
  7. DEXAMETHASONE SODIUM PHOSPHATE. [Concomitant]
     Active Substance: DEXAMETHASONE SODIUM PHOSPHATE
     Route: 042
     Dates: start: 20210531, end: 20210531
  8. VITAMIN C [Concomitant]
     Active Substance: ASCORBIC ACID
     Dates: start: 20210613, end: 20210623
  9. POTASSIUM CHLORIDE. [Concomitant]
     Active Substance: POTASSIUM CHLORIDE
     Dates: start: 20210619, end: 20210627
  10. MECOBALAMIN [Concomitant]
     Active Substance: METHYLCOBALAMIN
     Dates: start: 20210621, end: 20210626
  11. HUMAN SERUM ALBUMIN [Concomitant]
     Active Substance: ALBUMIN HUMAN
     Indication: HYPOALBUMINAEMIA
     Dates: start: 20210625
  12. SODIUM CHLORIDE. [Concomitant]
     Active Substance: SODIUM CHLORIDE
     Dates: start: 20210627
  13. TIGECYCLINE. [Concomitant]
     Active Substance: TIGECYCLINE
     Dates: start: 20210718, end: 20210718
  14. DOXOFYLLINE [Concomitant]
     Active Substance: DOXOFYLLINE
     Indication: COUGH
     Dates: start: 20210613, end: 20210720
  15. VITAMIN B6 [Concomitant]
     Active Substance: PYRIDOXINE HYDROCHLORIDE
     Dates: start: 20210613, end: 20210623
  16. FUROSEMIDE. [Concomitant]
     Active Substance: FUROSEMIDE
     Dates: start: 20210625, end: 20210629
  17. THYMUS GLAND [Concomitant]
     Dates: start: 20210623, end: 20210720
  18. TIGECYCLINE. [Concomitant]
     Active Substance: TIGECYCLINE
     Dates: start: 20210719, end: 20210719
  19. DOXOFYLLINE [Concomitant]
     Active Substance: DOXOFYLLINE
     Indication: ASTHMA
     Dates: start: 20210720, end: 20210720
  20. GLUCOSE [Concomitant]
     Active Substance: DEXTROSE
     Dates: start: 20210713, end: 20210723
  21. FUROSEMIDE. [Concomitant]
     Active Substance: FUROSEMIDE
     Indication: POLYURIA
     Dates: start: 20210620, end: 20210701
  22. SPIRONOLACTONE. [Concomitant]
     Active Substance: SPIRONOLACTONE
     Indication: POLYURIA
     Dates: start: 20210628, end: 20210630
  23. REDUCED GLUTATHIONE SODIUM [Concomitant]
     Active Substance: GLUTATHIONE
     Dates: start: 20210629, end: 20210707
  24. TIRAGOLUMAB. [Suspect]
     Active Substance: TIRAGOLUMAB
     Indication: OESOPHAGEAL SQUAMOUS CELL CARCINOMA METASTATIC
     Route: 042
  25. MEGESTROL [Concomitant]
     Active Substance: MEGESTROL
     Dates: start: 20210625, end: 20210715
  26. ACETYLCYSTEINE. [Concomitant]
     Active Substance: ACETYLCYSTEINE
     Dates: start: 20210613, end: 20210624
  27. FUROSEMIDE. [Concomitant]
     Active Substance: FUROSEMIDE
     Dates: start: 20210720, end: 20210720
  28. ATEZOLIZUMAB. [Suspect]
     Active Substance: ATEZOLIZUMAB
     Indication: OESOPHAGEAL SQUAMOUS CELL CARCINOMA METASTATIC
     Route: 041
  29. ETAMSYLATE [Concomitant]
     Active Substance: ETHAMSYLATE
     Indication: HAEMOSTASIS
     Dates: start: 20210630, end: 20210711
  30. CEFOPERAZONE;SULBACTAM SODIUM [Concomitant]
     Active Substance: CEFOPERAZONE\SULBACTAM SODIUM
     Dates: start: 20210613, end: 20210705
  31. SULFAMETHOXAZOLE [Concomitant]
     Active Substance: SULFAMETHOXAZOLE
     Dates: start: 20210613, end: 20210701
  32. THROMBIN [Concomitant]
     Active Substance: THROMBIN
     Indication: HAEMOSTASIS
     Dates: start: 20210616
  33. AMBROXOL HYDROCHLORIDE [Concomitant]
     Active Substance: AMBROXOL HYDROCHLORIDE
     Dosage: REDUCE PHLEGM
     Dates: start: 20210613, end: 20210720
  34. BIFIDOBACTERIUM;LACTOBACILLUS;STREPTOCOCCUS [Concomitant]
     Dosage: REGULATING GASTROINTESTINAL FLORA
     Dates: start: 20210620, end: 20210701
  35. HUMAN SERUM ALBUMIN [Concomitant]
     Active Substance: ALBUMIN HUMAN
     Dates: start: 20210630, end: 20210710
  36. FERROUS SUCCINATE [Concomitant]
     Active Substance: FERROUS SUCCINATE
     Indication: ANAEMIA
     Dates: start: 20210621, end: 20210721
  37. HUMAN SERUM ALBUMIN [Concomitant]
     Active Substance: ALBUMIN HUMAN
     Dates: start: 20210718, end: 20210720
  38. SODIUM CHLORIDE. [Concomitant]
     Active Substance: SODIUM CHLORIDE
     Dates: start: 20210630, end: 20210705
  39. MECOBALAMIN [Concomitant]
     Active Substance: METHYLCOBALAMIN
     Dates: start: 20210630, end: 20210701
  40. BISOPROLOL [Concomitant]
     Active Substance: BISOPROLOL
     Dates: start: 20210701, end: 20210720

REACTIONS (3)
  - Death [Fatal]
  - Nausea [Not Recovered/Not Resolved]
  - Immune-mediated lung disease [Not Recovered/Not Resolved]

NARRATIVE: CASE EVENT DATE: 20210611
